FAERS Safety Report 15243079 (Version 1)
Quarter: 2018Q3

REPORT INFORMATION
  Report Type: Spontaneous
  Country: JP (occurrence: JP)
  Receive Date: 20180806
  Receipt Date: 20180806
  Transmission Date: 20181010
  Serious: Yes (Life-Threatening, Hospitalization, Other)
  Sender: FDA-Public Use
  Company Number: JP-SA-2018SA174544

PATIENT
  Age: 63 Year
  Sex: Male

DRUGS (4)
  1. ETIZOLAM [Suspect]
     Active Substance: ETIZOLAM
  2. ZOLPIDEM TARTRATE. [Suspect]
     Active Substance: ZOLPIDEM TARTRATE
  3. LITHIUM CARBONATE. [Suspect]
     Active Substance: LITHIUM CARBONATE
  4. LAMOTRIGINE. [Suspect]
     Active Substance: LAMOTRIGINE

REACTIONS (13)
  - Chronic kidney disease [Unknown]
  - Intentional overdose [Unknown]
  - Hypokalaemia [Unknown]
  - Leukoencephalopathy [Recovered/Resolved with Sequelae]
  - Hypotension [Unknown]
  - Respiratory acidosis [Recovering/Resolving]
  - Tachypnoea [Unknown]
  - Anaemia [Unknown]
  - Leukocytosis [Unknown]
  - Hepatic function abnormal [Unknown]
  - Tachycardia [Unknown]
  - Coma [Recovered/Resolved]
  - Hypoxia [Recovering/Resolving]
